FAERS Safety Report 16255193 (Version 1)
Quarter: 2019Q2

REPORT INFORMATION
  Report Type: Spontaneous
  Country: ES (occurrence: ES)
  Receive Date: 20190430
  Receipt Date: 20190430
  Transmission Date: 20190711
  Serious: Yes (Death, Other)
  Sender: FDA-Public Use
  Company Number: ES-TEVA-2019-ES-1043552

PATIENT
  Age: 74 Year
  Sex: Male

DRUGS (4)
  1. FOLINIC ACID [Suspect]
     Active Substance: LEUCOVORIN
     Indication: ADENOCARCINOMA OF COLON
     Dosage: PART OF MFOLFOX REGIMEN
     Route: 065
  2. FLUOROURACIL. [Suspect]
     Active Substance: FLUOROURACIL
     Indication: ADENOCARCINOMA OF COLON
     Dosage: PART OF MFOLFOX REGIMEN
     Route: 065
  3. OXALIPLATIN. [Suspect]
     Active Substance: OXALIPLATIN
     Indication: ADENOCARCINOMA OF COLON
     Dosage: PART OF MFOLFOX REGIMEN
     Route: 065
  4. SIR-SPHERES [Suspect]
     Active Substance: DEVICE\YTTRIUM Y-90
     Indication: ADENOCARCINOMA OF COLON
     Route: 065
     Dates: start: 20141120

REACTIONS (5)
  - Hepatic encephalopathy [Unknown]
  - Hepatic failure [Fatal]
  - Hypoalbuminaemia [Unknown]
  - Hyperbilirubinaemia [Unknown]
  - Portal hypertension [Unknown]
